FAERS Safety Report 5108253-1 (Version None)
Quarter: 2006Q3

REPORT INFORMATION
  Report Type: 
  Country: None (occurrence: None)
  Receive Date: 20060919
  Receipt Date: 20060908
  Transmission Date: 20061208
  Serious: Yes (Other)
  Sender: FDA-Public Use
  Company Number: JP-BRISTOL-MYERS SQUIBB COMPANY-13508494

PATIENT
  Age: 75 Year
  Sex: Female

DRUGS (7)
  1. GATIFLO [Suspect]
     Indication: CYSTITIS
     Route: 048
     Dates: start: 20060906, end: 20060907
  2. SOLETON [Concomitant]
     Route: 048
     Dates: start: 20060906, end: 20060907
  3. PAMILCON [Concomitant]
     Route: 048
     Dates: start: 20040603, end: 20060907
  4. BEHYD [Concomitant]
     Route: 048
     Dates: start: 19991221, end: 20060907
  5. NIKORANMART [Concomitant]
     Dates: start: 20040908, end: 20060907
  6. METFORMIN HYDROCHLORIDE [Concomitant]
     Route: 048
     Dates: start: 20050416, end: 20060907
  7. GLYCYRRHIZA [Concomitant]
     Route: 048
     Dates: start: 20040914, end: 20060907

REACTIONS (1)
  - HYPOGLYCAEMIA [None]
